FAERS Safety Report 5426696-3 (Version None)
Quarter: 2007Q3

REPORT INFORMATION
  Report Type: 
  Country: None (occurrence: None)
  Receive Date: 20070731
  Receipt Date: 20070405
  Transmission Date: 20080115
  Serious: No
  Sender: FDA-Public Use
  Company Number: 2005PV005571

PATIENT
  Age: 54 Year
  Sex: Female
  Weight: 95.3 kg

DRUGS (8)
  1. BYETTA [Suspect]
     Indication: TYPE 2 DIABETES MELLITUS
     Dosage: 5 UG, 2/D, SUBCUTANEOUS; 2/G, SUBCUTANEOUS
     Route: 058
     Dates: start: 20060101, end: 20060101
  2. BYETTA [Suspect]
     Indication: TYPE 2 DIABETES MELLITUS
     Dosage: 5 UG, 2/D, SUBCUTANEOUS; 2/G, SUBCUTANEOUS
     Route: 058
     Dates: start: 20051101
  3. VITAMINS [Concomitant]
  4. COD LIVER OIL [Concomitant]
  5. POTASSIUM CHLORIDE [Concomitant]
  6. GLUCOVANCE [Concomitant]
  7. AVANDIA [Concomitant]
  8. RANITIDINE [Concomitant]

REACTIONS (9)
  - DRUG EFFECT DECREASED [None]
  - EARLY SATIETY [None]
  - ERUCTATION [None]
  - HEADACHE [None]
  - NAUSEA [None]
  - NECK PAIN [None]
  - SKIN PAPILLOMA [None]
  - STRESS [None]
  - THERAPEUTIC RESPONSE UNEXPECTED [None]
